FAERS Safety Report 21034634 (Version 6)
Quarter: 2023Q2

REPORT INFORMATION
  Report Type: Report from Study
  Country: CO (occurrence: CO)
  Receive Date: 20220701
  Receipt Date: 20230417
  Transmission Date: 20230722
  Serious: Yes (Death, Hospitalization)
  Sender: FDA-Public Use
  Company Number: CO-002147023-NVSC2022CO120077

PATIENT

DRUGS (4)
  1. RUXOLITINIB [Suspect]
     Active Substance: RUXOLITINIB
     Indication: Myelofibrosis
     Dosage: 40 MG, QD
     Route: 048
  2. RUXOLITINIB [Suspect]
     Active Substance: RUXOLITINIB
     Dosage: 20 MG (60 TABLETS)
     Route: 048
     Dates: start: 20221205
  3. RUXOLITINIB [Suspect]
     Active Substance: RUXOLITINIB
     Dosage: 40 MG, QD
     Route: 048
  4. RUXOLITINIB [Suspect]
     Active Substance: RUXOLITINIB
     Dosage: UNK
     Route: 048

REACTIONS (13)
  - Anaemia [Unknown]
  - Cough [Unknown]
  - Death [Fatal]
  - Diarrhoea [Unknown]
  - Gastroenteritis [Unknown]
  - Weight increased [Unknown]
  - Inappropriate schedule of product administration [Unknown]
  - Malaise [Unknown]
  - Illness [Unknown]
  - Hyperhidrosis [Unknown]
  - Drug intolerance [Unknown]
  - Device occlusion [Unknown]
  - Vomiting [Unknown]

NARRATIVE: CASE EVENT DATE: 20230324
